FAERS Safety Report 4480148-6 (Version None)
Quarter: 2004Q3

REPORT INFORMATION
  Report Type: 
  Country: None (occurrence: None)
  Receive Date: 20040923
  Receipt Date: 20040729
  Transmission Date: 20050211
  Serious: No
  Sender: FDA-Public Use
  Company Number: USA040669425

PATIENT
  Age: 74 Year
  Sex: Female
  Weight: 58 kg

DRUGS (6)
  1. FORTEO [Suspect]
     Indication: OSTEOPOROSIS
     Dosage: 20 UG EVERY OTHER DAY
     Dates: start: 20040604, end: 20040729
  2. VITAMIN B12 FOR INJECTION (CYANOCOBALAMIN) [Concomitant]
  3. PROTONIX [Concomitant]
  4. LORAZEPAM [Concomitant]
  5. CALTRATE (CALCIUM CARBONATE) [Concomitant]
  6. MULTI-VITAMIN [Concomitant]

REACTIONS (19)
  - ABNORMAL SENSATION IN EYE [None]
  - ASTHENIA [None]
  - BLOOD PRESSURE DECREASED [None]
  - BONE PAIN [None]
  - COUGH [None]
  - DEPRESSION [None]
  - DYSURIA [None]
  - EYE PAIN [None]
  - EYE SWELLING [None]
  - FEELING ABNORMAL [None]
  - HEADACHE [None]
  - INJECTION SITE HAEMORRHAGE [None]
  - INJECTION SITE PAIN [None]
  - MUSCLE CRAMP [None]
  - NERVOUSNESS [None]
  - OEDEMA PERIPHERAL [None]
  - PAIN [None]
  - PAIN IN EXTREMITY [None]
  - SWELLING FACE [None]
